FAERS Safety Report 16213505 (Version 2)
Quarter: 2019Q2

REPORT INFORMATION
  Report Type: Spontaneous
  Country: ES (occurrence: ES)
  Receive Date: 20190418
  Receipt Date: 20190625
  Transmission Date: 20190711
  Serious: Yes (Other)
  Sender: FDA-Public Use
  Company Number: ES-ASTRAZENECA-2019SE58783

PATIENT
  Age: 51 Year
  Sex: Female
  Weight: 99 kg

DRUGS (7)
  1. ATORVASTATIN [Concomitant]
     Active Substance: ATORVASTATIN
     Indication: TYPE IIA HYPERLIPIDAEMIA
     Route: 048
     Dates: start: 20181130
  2. TOUJEO [Concomitant]
     Active Substance: INSULIN GLARGINE
     Indication: TYPE 2 DIABETES MELLITUS
     Dates: start: 20190222
  3. FORXIGA [Suspect]
     Active Substance: DAPAGLIFLOZIN
     Indication: TYPE 2 DIABETES MELLITUS
     Route: 048
     Dates: start: 20171123, end: 20190315
  4. SITAGLIPTIN [Concomitant]
     Active Substance: SITAGLIPTIN
     Indication: TYPE 2 DIABETES MELLITUS
     Route: 048
     Dates: start: 20190315
  5. OMEPRAZOL [Concomitant]
     Active Substance: OMEPRAZOLE
     Indication: DYSPEPSIA
     Route: 048
     Dates: start: 20171006
  6. ESCITALOPRAM [Concomitant]
     Active Substance: ESCITALOPRAM OXALATE
     Indication: ANXIETY
     Dates: start: 20171006
  7. ORFIDAL [Concomitant]
     Active Substance: LORAZEPAM
     Indication: ANXIETY
     Route: 048
     Dates: start: 20171006

REACTIONS (3)
  - Vulvovaginal candidiasis [Recovering/Resolving]
  - Vaginal infection [Recovering/Resolving]
  - Groin abscess [Recovered/Resolved]

NARRATIVE: CASE EVENT DATE: 20180328
